FAERS Safety Report 6742796-X (Version None)
Quarter: 2010Q2

REPORT INFORMATION
  Report Type: 
  Country: None (occurrence: None)
  Receive Date: 20100525
  Receipt Date: 20100511
  Transmission Date: 20101027
  Serious: Yes (Hospitalization, Other)
  Sender: FDA-Public Use
  Company Number: A-US2010-36208

PATIENT
  Age: 53 Year
  Sex: Female
  Weight: 65.6 kg

DRUGS (13)
  1. TRACLEER [Suspect]
     Indication: PULMONARY ARTERIAL HYPERTENSION
     Dosage: 125 MG BID ORAL
     Route: 048
     Dates: start: 20050413, end: 20100311
  2. NEVATIO (SILDENAFIL CITRATE) [Concomitant]
  3. COUMADIN (WARARIN SODIUM) [Concomitant]
  4. LASIX [Concomitant]
  5. DIGOXIN [Concomitant]
  6. SPIRONOLACTONE [Concomitant]
  7. POTASSIUM CHLORIDE [Concomitant]
  8. OXYGEN (OXYGEN) [Concomitant]
  9. TREPROSTINIL (TREPROSTINIL) [Concomitant]
  10. URSODIOL [Concomitant]
  11. DRONEDARONE (DRONEDARONE) [Concomitant]
  12. FLOLAN [Concomitant]
  13. IBUPROFEN [Concomitant]

REACTIONS (24)
  - ATRIAL FIBRILLATION [None]
  - ATRIAL FLUTTER [None]
  - BILIARY DYSKINESIA [None]
  - BLOOD CREATININE INCREASED [None]
  - BRADYARRHYTHMIA [None]
  - CHOLECYSTITIS [None]
  - CHOLESTASIS [None]
  - DISEASE PROGRESSION [None]
  - HEPATIC CONGESTION [None]
  - HEPATIC FIBROSIS [None]
  - HEPATIC SIDEROSIS [None]
  - HEPATIC STEATOSIS [None]
  - HEPATITIS [None]
  - HEPATOTOXICITY [None]
  - HYPOTENSION [None]
  - LIVER DISORDER [None]
  - PERICARDIAL EFFUSION [None]
  - PLEURAL EFFUSION [None]
  - PULMONARY ARTERIAL HYPERTENSION [None]
  - RENAL DISORDER [None]
  - RIGHT VENTRICULAR FAILURE [None]
  - SICK SINUS SYNDROME [None]
  - URINARY TRACT INFECTION [None]
  - VENOUS INSUFFICIENCY [None]
